FAERS Safety Report 5257805-7 (Version None)
Quarter: 2007Q1

REPORT INFORMATION
  Report Type: 
  Country: None (occurrence: None)
  Receive Date: 20070307
  Receipt Date: 20070131
  Transmission Date: 20070707
  Serious: Yes (Hospitalization)
  Sender: FDA-Public Use
  Company Number: GB-BRISTOL-MYERS SQUIBB COMPANY-13703764

PATIENT
  Age: 57 Year
  Sex: Male

DRUGS (6)
  1. CETUXIMAB [Suspect]
     Indication: COLORECTAL CANCER
     Route: 042
     Dates: start: 20061218, end: 20061218
  2. OXALIPLATIN [Suspect]
     Indication: COLORECTAL CANCER
     Route: 042
     Dates: start: 20061218, end: 20061218
  3. FLUOROURACIL [Suspect]
     Indication: COLORECTAL CANCER
     Route: 042
     Dates: start: 20061116, end: 20061218
  4. FLUCONAZOLE [Concomitant]
     Route: 048
  5. CHLORPROMAZINE [Concomitant]
     Route: 048
     Dates: start: 20070109, end: 20070109
  6. ACETAMINOPHEN [Concomitant]
     Route: 048

REACTIONS (2)
  - ANAEMIA [None]
  - JAUNDICE [None]
